FAERS Safety Report 23076400 (Version 1)
Quarter: 2023Q4

REPORT INFORMATION
  Report Type: Spontaneous
  Country: US (occurrence: US)
  Receive Date: 20231017
  Receipt Date: 20231017
  Transmission Date: 20240109
  Serious: No
  Sender: FDA-Public Use
  Company Number: US-PERRIGO-23US001585

PATIENT
  Age: 41 Year
  Sex: Male
  Weight: 83.9 kg

DRUGS (1)
  1. NICOTINE POLACRILEX [Suspect]
     Active Substance: NICOTINE
     Indication: Smoking cessation therapy
     Dosage: 4 MG, Q 2 H. PRN, 11 TIMES TOTAL
     Route: 002
     Dates: start: 20230127, end: 20230128

REACTIONS (2)
  - Glossitis [Recovered/Resolved]
  - Tongue discolouration [Recovered/Resolved]

NARRATIVE: CASE EVENT DATE: 20230127
